FAERS Safety Report 22352921 (Version 1)
Quarter: 2023Q2

REPORT INFORMATION
  Report Type: Other
  Country: FR (occurrence: FR)
  Receive Date: 20230523
  Receipt Date: 20230523
  Transmission Date: 20230722
  Serious: Yes (Hospitalization)
  Sender: FDA-Public Use
  Company Number: None

PATIENT

DRUGS (5)
  1. AMLODIPINE [Suspect]
     Active Substance: AMLODIPINE BESYLATE
     Indication: Medication error
     Dosage: 5 MILLIGRAM
     Route: 048
     Dates: start: 20230419, end: 20230419
  2. BISOPROLOL [Suspect]
     Active Substance: BISOPROLOL
     Indication: Medication error
     Dosage: 2.5 MILLIGRAM
     Route: 048
     Dates: start: 20230419, end: 20230419
  3. LAMOTRIGINE [Suspect]
     Active Substance: LAMOTRIGINE
     Indication: Medication error
     Dosage: 5 MILLIGRAM
     Route: 048
     Dates: start: 20230419, end: 20230419
  4. KARDEGIC [Suspect]
     Active Substance: ASPIRIN DL-LYSINE
     Indication: Medication error
     Dosage: 75 MILLIGRAM
     Route: 048
     Dates: start: 20230419, end: 20230419
  5. PIPAMPERONE [Suspect]
     Active Substance: PIPAMPERONE
     Indication: Medication error
     Dosage: 40 MILLIGRAM
     Route: 048
     Dates: start: 20230419, end: 20230419

REACTIONS (8)
  - Hypothermia [Recovering/Resolving]
  - Coma scale abnormal [Recovered/Resolved]
  - Somnolence [Recovered/Resolved]
  - Bradycardia [Recovered/Resolved]
  - Hypotension [Recovered/Resolved]
  - Vomiting [Recovered/Resolved]
  - Product administration error [Unknown]
  - Wrong patient received product [Unknown]

NARRATIVE: CASE EVENT DATE: 20230419
